FAERS Safety Report 10172721 (Version 3)
Quarter: 2014Q3

REPORT INFORMATION
  Report Type: Spontaneous
  Country: ES (occurrence: ES)
  Receive Date: 20140515
  Receipt Date: 20140821
  Transmission Date: 20150326
  Serious: Yes (Other)
  Sender: FDA-Public Use
  Company Number: ES-MERCK-1405ESP001757

PATIENT
  Age: 49 Year
  Sex: Female
  Weight: 67 kg

DRUGS (9)
  1. DARUNAVIR (+) RITONAVIR [Concomitant]
     Active Substance: DARUNAVIR\RITONAVIR
     Indication: HIV INFECTION
     Dosage: TOTAL DAILY DOSE: 800/100 MG
     Dates: start: 20100602
  2. PEGINTRON [Suspect]
     Active Substance: PEGINTERFERON ALFA-2B
     Indication: HEPATITIS C
     Dosage: DAILY DOSE: 80 MICROGRAM, QW
     Route: 058
     Dates: start: 20130322, end: 20130726
  3. REBETOL [Suspect]
     Active Substance: RIBAVIRIN
     Indication: HEPATITIS C
     Dosage: DAILY DOSE; 800 MG, DAILY
     Route: 048
     Dates: start: 20130322, end: 20130614
  4. TELAPREVIR [Suspect]
     Active Substance: TELAPREVIR
     Indication: HEPATITIS C
     Dosage: DAILY DOSE: 750 MG/ Q8H
     Route: 048
     Dates: start: 20130420, end: 20130712
  5. TENOFOVIR [Concomitant]
     Active Substance: TENOFOVIR
     Indication: HIV INFECTION
     Dosage: TOTAL DAILY DOSE: 245 MG
     Route: 048
     Dates: start: 20130313, end: 20130617
  6. REBETOL [Suspect]
     Active Substance: RIBAVIRIN
     Dosage: DAILY DOSE: 600 MG/DAY
     Route: 048
     Dates: start: 20130614, end: 20130626
  7. REBETOL [Suspect]
     Active Substance: RIBAVIRIN
     Dosage: DAILY DOSE: 400 MG, QD
     Route: 048
     Dates: start: 20130626, end: 20140314
  8. PEGINTRON [Suspect]
     Active Substance: PEGINTERFERON ALFA-2B
     Dosage: TOTAL DAILY DOSE: 65, QW
     Route: 058
     Dates: start: 20130626, end: 20130726
  9. PEGINTRON [Suspect]
     Active Substance: PEGINTERFERON ALFA-2B
     Dosage: TOTAL DAILY DOSE: 50, QW
     Route: 058
     Dates: start: 20130726, end: 20140314

REACTIONS (2)
  - Anaemia [Recovered/Resolved]
  - Transfusion [Recovered/Resolved]

NARRATIVE: CASE EVENT DATE: 20130516
